FAERS Safety Report 13710886 (Version 1)
Quarter: 2017Q3

REPORT INFORMATION
  Report Type: Spontaneous
  Country: US (occurrence: US)
  Receive Date: 20170701
  Receipt Date: 20170701
  Transmission Date: 20171127
  Serious: Yes (Hospitalization)
  Sender: FDA-Public Use
  Company Number: None

PATIENT
  Age: 57 Year
  Sex: Female
  Weight: 135 kg

DRUGS (4)
  1. METHOTREXATE. [Suspect]
     Active Substance: METHOTREXATE
     Dates: end: 20170424
  2. VINBLASTINE SULFATE. [Suspect]
     Active Substance: VINBLASTINE SULFATE
     Dates: end: 20170424
  3. DOXORUBICIN HYDROCHLORIDE. [Suspect]
     Active Substance: DOXORUBICIN HYDROCHLORIDE
     Dates: end: 20170424
  4. CISPLATIN. [Suspect]
     Active Substance: CISPLATIN
     Dates: end: 20170424

REACTIONS (4)
  - Hypophagia [None]
  - Haemoglobin decreased [None]
  - Hypotension [None]
  - Pulmonary embolism [None]

NARRATIVE: CASE EVENT DATE: 20170503
